FAERS Safety Report 4965531-4 (Version None)
Quarter: 2006Q1

REPORT INFORMATION
  Report Type: 
  Country: None (occurrence: None)
  Receive Date: 20060201
  Receipt Date: 20051206
  Transmission Date: 20060701
  Serious: No
  Sender: FDA-Public Use
  Company Number: 2005PV005482

PATIENT
  Age: 72 Year
  Sex: Female
  Weight: 54.4316 kg

DRUGS (5)
  1. BYETTA [Suspect]
     Indication: DIABETES MELLITUS
     Dosage: 5 MCG, BID; SC
     Route: 058
     Dates: start: 20051101
  2. LANTUS [Concomitant]
  3. HUMALOG [Concomitant]
  4. GLUCOPHAGE [Concomitant]
  5. BLOOD PRESSURE MEDICATION [Concomitant]

REACTIONS (4)
  - BLOOD GLUCOSE INCREASED [None]
  - ERUCTATION [None]
  - NAUSEA [None]
  - VOMITING [None]
